FAERS Safety Report 15879510 (Version 1)
Quarter: 2019Q1

REPORT INFORMATION
  Report Type: Spontaneous
  Country: GR (occurrence: GR)
  Receive Date: 20190128
  Receipt Date: 20190128
  Transmission Date: 20190417
  Serious: Yes (Disabling)
  Sender: FDA-Public Use
  Company Number: GR-MYLANLABS-2019M1006579

PATIENT
  Age: 55 Year
  Sex: Female
  Weight: 108 kg

DRUGS (5)
  1. FLUVASTATIN [Suspect]
     Active Substance: FLUVASTATIN SODIUM
     Indication: CORONARY ARTERY DISEASE
     Dosage: 80 MILLIGRAM, QD
     Route: 048
     Dates: start: 201804, end: 201806
  2. PRAVASTATIN. [Suspect]
     Active Substance: PRAVASTATIN
     Indication: CORONARY ARTERY DISEASE
     Dosage: 40 MILLIGRAM, QD
     Route: 048
     Dates: start: 201710, end: 201802
  3. PRAVASTATIN. [Suspect]
     Active Substance: PRAVASTATIN
     Dosage: 20 MILLIGRAM, QD
     Route: 048
     Dates: start: 201710, end: 201802
  4. ROSUVASTATIN. [Suspect]
     Active Substance: ROSUVASTATIN
     Indication: CORONARY ARTERY DISEASE
     Dosage: 40 MILLIGRAM, QD
     Route: 048
     Dates: start: 201707, end: 201708
  5. ATORVASTATIN [Suspect]
     Active Substance: ATORVASTATIN
     Indication: CORONARY ARTERY DISEASE
     Dosage: 40 MILLIGRAM, QD
     Dates: start: 201708, end: 201709

REACTIONS (2)
  - Myalgia [Not Recovered/Not Resolved]
  - Muscle spasms [Not Recovered/Not Resolved]

NARRATIVE: CASE EVENT DATE: 201707
